FAERS Safety Report 6509935-7 (Version None)
Quarter: 2009Q4

REPORT INFORMATION
  Report Type: 
  Country: None (occurrence: None)
  Receive Date: 20091222
  Receipt Date: 20091214
  Transmission Date: 20100525
  Serious: Yes (Hospitalization, Disabling, Other)
  Sender: FDA-Public Use
  Company Number: PHEH2009US12509

PATIENT
  Sex: Male

DRUGS (1)
  1. EXJADE [Suspect]
     Dosage: 3125, UNK DAILY
     Route: 048
     Dates: start: 20070420, end: 20090831

REACTIONS (7)
  - HERNIA REPAIR [None]
  - MALNUTRITION [None]
  - PAIN [None]
  - POST PROCEDURAL COMPLICATION [None]
  - SEPSIS [None]
  - SURGERY [None]
  - UMBILICAL HERNIA [None]
